FAERS Safety Report 5130554-1 (Version None)
Quarter: 2006Q4

REPORT INFORMATION
  Report Type: 
  Country: None (occurrence: None)
  Receive Date: 20061013
  Receipt Date: 20061005
  Transmission Date: 20070319
  Serious: Yes (Hospitalization)
  Sender: FDA-Public Use
  Company Number: 163-20785-06100394

PATIENT
  Sex: Female

DRUGS (1)
  1. THALOMID [Suspect]
     Indication: METASTASIS
     Dosage: 100 MG, 2 IN 1 D, ORAL
     Route: 048
     Dates: start: 20060907

REACTIONS (1)
  - LOWER LIMB FRACTURE [None]
